FAERS Safety Report 12092334 (Version 1)
Quarter: 2016Q1

REPORT INFORMATION
  Report Type: Spontaneous
  Country: US (occurrence: None)
  Receive Date: 20160217
  Receipt Date: 20160217
  Transmission Date: 20160526
  Serious: Yes (Hospitalization)
  Sender: FDA-Public Use
  Company Number: None

PATIENT
  Age: 4 Year
  Sex: Female
  Weight: 16.7 kg

DRUGS (5)
  1. CYTARABINE. [Suspect]
     Active Substance: CYTARABINE
     Dates: end: 20151218
  2. DEXAMETHASONE. [Suspect]
     Active Substance: DEXAMETHASONE
     Dates: end: 20151231
  3. VINCRISTINE SULFATE. [Suspect]
     Active Substance: VINCRISTINE SULFATE
     Dates: end: 20151231
  4. METHOTREXATE [Suspect]
     Active Substance: METHOTREXATE
     Dates: end: 20160120
  5. ONCASPAR [Suspect]
     Active Substance: PEGASPARGASE
     Dates: end: 20151222

REACTIONS (6)
  - Metastases to meninges [None]
  - Headache [None]
  - Fatigue [None]
  - Encephalitis [None]
  - Vasculitis [None]
  - Meningitis [None]

NARRATIVE: CASE EVENT DATE: 20160115
